FAERS Safety Report 25396323 (Version 1)
Quarter: 2025Q2

REPORT INFORMATION
  Report Type: Spontaneous
  Country: CA (occurrence: None)
  Receive Date: 20250603
  Receipt Date: 20250603
  Transmission Date: 20250717
  Serious: Yes (Life-Threatening, Disabling, Congenital Anomaly, Other)
  Sender: FDA-CTU
  Company Number: None

PATIENT
  Age: 48 Year
  Sex: Female
  Weight: 49.5 kg

DRUGS (8)
  1. PAROXETINE [Suspect]
     Active Substance: PAROXETINE
     Indication: Generalised anxiety disorder
  2. Symbicourt [Concomitant]
  3. CALCIUM [Concomitant]
     Active Substance: CALCIUM
  4. FERROUS GLUCONATE [Concomitant]
     Active Substance: FERROUS GLUCONATE
  5. VITAMIN D [Concomitant]
     Active Substance: VITAMIN D NOS
  6. MULTI-VITAMIN [Concomitant]
     Active Substance: .ALPHA.-TOCOPHEROL ACETATE, DL-\ASCORBIC ACID\CYANOCOBALAMIN\FLUORIDE ION\FOLIC ACID\NIACIN\PYRIDOXI
  7. PROBIOTICS NOS [Concomitant]
     Active Substance: PROBIOTICS NOS
  8. MAGNESIUM [Concomitant]
     Active Substance: MAGNESIUM

REACTIONS (24)
  - Anger [None]
  - Nervous system disorder [None]
  - Pregnancy [None]
  - Exposure during pregnancy [None]
  - Foetal exposure during delivery [None]
  - Tremor neonatal [None]
  - Withdrawal syndrome [None]
  - Product administration error [None]
  - Suicidal ideation [None]
  - Anger [None]
  - Depression [None]
  - Headache [None]
  - Brain fog [None]
  - Electric shock sensation [None]
  - Hyperhidrosis [None]
  - Gastrointestinal disorder [None]
  - Dizziness [None]
  - Balance disorder [None]
  - Crying [None]
  - Palpitations [None]
  - Feeling of despair [None]
  - Dissociation [None]
  - Drug ineffective [None]
  - Loss of personal independence in daily activities [None]

NARRATIVE: CASE EVENT DATE: 20240305
